FAERS Safety Report 10273151 (Version 4)
Quarter: 2014Q4

REPORT INFORMATION
  Report Type: Report from Study
  Country: US (occurrence: US)
  Receive Date: 20140702
  Receipt Date: 20141218
  Transmission Date: 20150528
  Serious: Yes (Other)
  Sender: FDA-Public Use
  Company Number: US-SA-2014SA084119

PATIENT
  Age: 46 Year
  Sex: Female

DRUGS (2)
  1. AUBAGIO [Suspect]
     Active Substance: TERIFLUNOMIDE
     Indication: MULTIPLE SCLEROSIS
     Route: 048
     Dates: start: 20140603
  2. CLARITIN [Concomitant]
     Active Substance: LORATADINE

REACTIONS (7)
  - Hypoaesthesia [Unknown]
  - Dysgraphia [Unknown]
  - Anxiety [Unknown]
  - Pollakiuria [Unknown]
  - Gait disturbance [Unknown]
  - Memory impairment [Unknown]
  - Rehabilitation therapy [Unknown]

NARRATIVE: CASE EVENT DATE: 2014
